FAERS Safety Report 10226747 (Version 1)
Quarter: 2014Q2

REPORT INFORMATION
  Report Type: Spontaneous
  Country: TR (occurrence: TR)
  Receive Date: 20140610
  Receipt Date: 20140610
  Transmission Date: 20141212
  Serious: Yes (Other)
  Sender: FDA-Public Use
  Company Number: TR-INDICUS PHARMA-000259

PATIENT
  Age: 57 Year
  Sex: Female

DRUGS (2)
  1. METFORMIN [Suspect]
     Indication: DIABETES MELLITUS
  2. SULFASALAZINE [Suspect]
     Indication: RHEUMATOID ARTHRITIS

REACTIONS (7)
  - Exostosis [Unknown]
  - Diabetic cheiropathy [Unknown]
  - Diabetes mellitus inadequate control [Unknown]
  - Vitamin D deficiency [Unknown]
  - Myalgia [Recovered/Resolved]
  - Carpal tunnel syndrome [Unknown]
  - Periarthritis [Unknown]
